FAERS Safety Report 7157936-0 (Version None)
Quarter: 2010Q4

REPORT INFORMATION
  Report Type: 
  Country: None (occurrence: None)
  Receive Date: 20101214
  Receipt Date: 20101209
  Transmission Date: 20110411
  Serious: Yes (Hospitalization)
  Sender: FDA-Public Use
  Company Number: ES-MERCK-1012ESP00007

PATIENT
  Age: 73 Year
  Sex: Male

DRUGS (1)
  1. INVANZ [Suspect]
     Indication: CHOLANGITIS ACUTE
     Route: 042
     Dates: start: 20091222, end: 20091226

REACTIONS (1)
  - COMPLEX PARTIAL SEIZURES [None]
